FAERS Safety Report 7083682-8 (Version None)
Quarter: 2010Q4

REPORT INFORMATION
  Report Type: 
  Country: None (occurrence: None)
  Receive Date: 20101103
  Receipt Date: 20101103
  Transmission Date: 20110411
  Serious: Yes (Other)
  Sender: FDA-Public Use
  Company Number: None

PATIENT
  Age: 45 Year
  Sex: Female
  Weight: 90.7194 kg

DRUGS (1)
  1. CRESTOR [Suspect]
     Indication: BLOOD CHOLESTEROL INCREASED
     Dosage: 1 TABLET ONE TIME A DAY PO
     Route: 048
     Dates: start: 20101020, end: 20101102

REACTIONS (6)
  - ARTHRALGIA [None]
  - CONFUSIONAL STATE [None]
  - DRY MOUTH [None]
  - DYSSTASIA [None]
  - FATIGUE [None]
  - MUSCULOSKELETAL CHEST PAIN [None]
